FAERS Safety Report 23067972 (Version 1)
Quarter: 2023Q4

REPORT INFORMATION
  Report Type: Spontaneous
  Country: CA (occurrence: CA)
  Receive Date: 20231016
  Receipt Date: 20231016
  Transmission Date: 20240109
  Serious: No
  Sender: FDA-Public Use
  Company Number: US-BAYER-2023A108048

PATIENT
  Age: 52 Year
  Sex: Female

DRUGS (1)
  1. ALEVE [Suspect]
     Active Substance: NAPROXEN SODIUM
     Dosage: 1 TABLET
     Route: 048
     Dates: start: 2022, end: 20230730

REACTIONS (1)
  - Therapeutic response unexpected [Unknown]
